FAERS Safety Report 18053841 (Version 1)
Quarter: 2020Q3

REPORT INFORMATION
  Report Type: Spontaneous
  Country: CA (occurrence: CA)
  Receive Date: 20200722
  Receipt Date: 20200722
  Transmission Date: 20201103
  Serious: Yes (Other)
  Sender: FDA-Public Use
  Company Number: CA-ACCORD-191500

PATIENT
  Age: 67 Year
  Sex: Female

DRUGS (7)
  1. XELJANZ [Concomitant]
     Active Substance: TOFACITINIB CITRATE
     Indication: RHEUMATOID ARTHRITIS
     Dosage: 2 EVERY 1 DAYS
     Route: 048
  2. METHOTREXATE. [Suspect]
     Active Substance: METHOTREXATE
     Indication: RHEUMATOID ARTHRITIS
     Dosage: 1 EVERY 1 WEEKS
  3. METHOTREXATE. [Suspect]
     Active Substance: METHOTREXATE
     Indication: RHEUMATOID ARTHRITIS
     Dosage: 1 EVERY 1 WEEKS
  4. HYDROXYCHLOROQUINE [Suspect]
     Active Substance: HYDROXYCHLOROQUINE
     Indication: PRODUCT USED FOR UNKNOWN INDICATION
  5. DESOXIMETASONE. [Concomitant]
     Active Substance: DESOXIMETASONE
  6. ACTEMRA [Suspect]
     Active Substance: TOCILIZUMAB
     Indication: PRODUCT USED FOR UNKNOWN INDICATION
  7. ORENCIA [Concomitant]
     Active Substance: ABATACEPT
     Dosage: 1 EVERY 1 MONTHS
     Route: 042

REACTIONS (6)
  - Drug ineffective [Unknown]
  - Red blood cell sedimentation rate increased [Unknown]
  - Urinary tract infection [Unknown]
  - Joint swelling [Unknown]
  - Therapeutic response decreased [Unknown]
  - Neutropenia [Unknown]
